FAERS Safety Report 12770825 (Version 2)
Quarter: 2016Q4

REPORT INFORMATION
  Report Type: Spontaneous
  Country: DE (occurrence: DE)
  Receive Date: 20160922
  Receipt Date: 20161201
  Transmission Date: 20170207
  Serious: Yes (Death)
  Sender: FDA-Public Use
  Company Number: DE-JNJFOC-20160921874

PATIENT
  Age: 92 Year
  Sex: Female

DRUGS (1)
  1. XARELTO [Suspect]
     Active Substance: RIVAROXABAN
     Indication: ATRIAL FIBRILLATION
     Route: 048
     Dates: start: 2013, end: 201608

REACTIONS (4)
  - Disturbance in attention [Fatal]
  - Haemorrhage intracranial [Fatal]
  - Respiratory failure [Fatal]
  - Respiratory paralysis [Fatal]

NARRATIVE: CASE EVENT DATE: 201608
